FAERS Safety Report 17920157 (Version 1)
Quarter: 2020Q2

REPORT INFORMATION
  Report Type: Spontaneous
  Country: US (occurrence: US)
  Receive Date: 20200620
  Receipt Date: 20200620
  Transmission Date: 20200714
  Serious: No
  Sender: FDA-Public Use
  Company Number: US-GLAXOSMITHKLINE-US2020100550

PATIENT
  Age: 58 Year
  Sex: Female

DRUGS (1)
  1. DICLOFENAC SODIUM. [Suspect]
     Active Substance: DICLOFENAC SODIUM
     Indication: MYALGIA
     Dosage: UNK
     Dates: start: 20200605

REACTIONS (5)
  - Wound [Unknown]
  - Application site pain [Unknown]
  - Product use in unapproved indication [Unknown]
  - Application site vesicles [Unknown]
  - Off label use [Unknown]

NARRATIVE: CASE EVENT DATE: 20200606
